FAERS Safety Report 4633327-9 (Version None)
Quarter: 2005Q2

REPORT INFORMATION
  Report Type: 
  Country: None (occurrence: None)
  Receive Date: 20050408
  Receipt Date: 20050325
  Transmission Date: 20051028
  Serious: Yes (Death, Life-Threatening, Hospitalization)
  Sender: FDA-Public Use
  Company Number: 2005-0008192

PATIENT
  Age: 48 Year
  Sex: Male

DRUGS (5)
  1. EMTRIVA [Suspect]
     Indication: HIV INFECTION
     Dosage: 200 MG, 1 IN 1 D, ORAL
     Route: 048
     Dates: start: 20040503
  2. VIREAD [Suspect]
     Indication: HIV INFECTION
     Dosage: 300 MG, 1 IN 1 D, ORAL
     Route: 048
     Dates: start: 20040503
  3. NORVIR [Suspect]
     Dosage: 200 MG, 1 IN 1 D, ORAL
     Route: 048
     Dates: start: 20040503, end: 20041213
  4. TELZIR (FOSAMPRENAVIR) [Suspect]
     Dosage: 2 DOSAGE FORMS,  1 IN 1 D, ORAL
     Route: 048
     Dates: start: 20041101, end: 20041213
  5. LAMIVUDINE [Concomitant]

REACTIONS (6)
  - CYTOLYTIC HEPATITIS [None]
  - HEPATIC FAILURE [None]
  - HEPATITIS CHOLESTATIC [None]
  - HYPOXIA [None]
  - MULTI-ORGAN FAILURE [None]
  - PYREXIA [None]
